FAERS Safety Report 9964433 (Version 1)
Quarter: 2014Q1

REPORT INFORMATION
  Report Type: Report from Study
  Country: US (occurrence: US)
  Receive Date: 20140305
  Receipt Date: 20140305
  Transmission Date: 20141002
  Serious: Yes (Other)
  Sender: FDA-Public Use
  Company Number: PHEH2014US004108

PATIENT
  Sex: Male

DRUGS (3)
  1. ZOMETA [Suspect]
     Indication: PLASMA CELL MYELOMA
  2. GABAPENTIN [Concomitant]
  3. CHLORTHALIDONE [Concomitant]

REACTIONS (1)
  - Thrombosis [Unknown]
